FAERS Safety Report 13988496 (Version 1)
Quarter: 2017Q3

REPORT INFORMATION
  Report Type: Spontaneous
  Country: US (occurrence: US)
  Receive Date: 20170919
  Receipt Date: 20170919
  Transmission Date: 20171128
  Serious: No
  Sender: FDA-Public Use
  Company Number: US-009507513-1709USA008776

PATIENT
  Age: 62 Year

DRUGS (4)
  1. CAPSICUM [Concomitant]
     Active Substance: CAPSICUM
  2. SUBOXONE [Concomitant]
     Active Substance: BUPRENORPHINE HYDROCHLORIDE\NALOXONE HYDROCHLORIDE
  3. ZEPATIER [Suspect]
     Active Substance: ELBASVIR\GRAZOPREVIR
     Indication: HEPATITIS C
     Dosage: 1 TABLET BY MOUTH EVERY DAY, 50- 100 MG
     Route: 048
     Dates: start: 201709
  4. MILK THISTLE [Concomitant]
     Active Substance: MILK THISTLE

REACTIONS (2)
  - Faeces soft [Unknown]
  - Fatigue [Unknown]

NARRATIVE: CASE EVENT DATE: 201709
